FAERS Safety Report 22855742 (Version 2)
Quarter: 2024Q2

REPORT INFORMATION
  Report Type: Report from Study
  Country: CA (occurrence: CA)
  Receive Date: 20230823
  Receipt Date: 20240424
  Transmission Date: 20240715
  Serious: Yes (Hospitalization, Other)
  Sender: FDA-Public Use
  Company Number: CA-JNJFOC-20230841706

PATIENT
  Age: 17 Year
  Sex: Male

DRUGS (2)
  1. REMICADE [Suspect]
     Active Substance: INFLIXIMAB
     Indication: Crohn^s disease
     Route: 041
     Dates: start: 20220930
  2. REMICADE [Suspect]
     Active Substance: INFLIXIMAB
     Dosage: THE PATIENT RECEIVED REMICADE INFUSION ON 17-AUG-2023
     Route: 041

REACTIONS (3)
  - Clostridium difficile infection [Recovering/Resolving]
  - Wisdom teeth removal [Recovered/Resolved]
  - Dehydration [Recovering/Resolving]

NARRATIVE: CASE EVENT DATE: 20230803
